FAERS Safety Report 23836100 (Version 1)
Quarter: 2024Q2

REPORT INFORMATION
  Report Type: Spontaneous
  Country: US (occurrence: None)
  Receive Date: 20240507
  Receipt Date: 20240507
  Transmission Date: 20240715
  Serious: Yes (Other)
  Sender: FDA-Public Use
  Company Number: None

PATIENT
  Sex: Male
  Weight: 113.4 kg

DRUGS (10)
  1. JARDIANCE [Suspect]
     Active Substance: EMPAGLIFLOZIN
     Route: 048
     Dates: start: 20231121, end: 20231126
  2. TAMSULOSIN [Concomitant]
     Active Substance: TAMSULOSIN
  3. ATORVASTATIN [Concomitant]
     Active Substance: ATORVASTATIN
  4. METOPROLOL [Concomitant]
     Active Substance: METOPROLOL
  5. CANDESARTAN [Concomitant]
     Active Substance: CANDESARTAN
  6. ELIQUIS [Concomitant]
     Active Substance: APIXABAN
  7. VITAMIN A [Concomitant]
     Active Substance: VITAMIN A
  8. VITAMIN C [Concomitant]
     Active Substance: ASCORBIC ACID
  9. VITAMIN B12 [Concomitant]
     Active Substance: CYANOCOBALAMIN
  10. CENTRUM SILVER 50+ [Concomitant]

REACTIONS (3)
  - Blood urine present [None]
  - Penile swelling [None]
  - Penile curvature [None]
